FAERS Safety Report 7944578-X (Version None)
Quarter: 2011Q4

REPORT INFORMATION
  Report Type: 
  Country: None (occurrence: None)
  Receive Date: 20111129
  Receipt Date: 20111117
  Transmission Date: 20120403
  Serious: Yes (Hospitalization)
  Sender: FDA-Public Use
  Company Number: GB-JNJFOC-20071102875

PATIENT
  Sex: Female
  Weight: 60 kg

DRUGS (17)
  1. INFLIXIMAB [Suspect]
     Route: 042
     Dates: start: 20070614
  2. HUMIRA [Suspect]
     Indication: PRODUCT USED FOR UNKNOWN INDICATION
     Dates: start: 20060111, end: 20070515
  3. FOLIC ACID [Concomitant]
  4. OMEPRAZOLE [Concomitant]
  5. VITAMIN B-12 [Concomitant]
  6. INFLIXIMAB [Suspect]
     Indication: RHEUMATOID ARTHRITIS
     Route: 042
     Dates: start: 20070710
  7. INFLIXIMAB [Suspect]
     Route: 042
     Dates: start: 20070109
  8. MESALAMINE [Concomitant]
  9. ZOPICLONE [Concomitant]
  10. INFLIXIMAB [Suspect]
     Route: 042
     Dates: start: 20070601
  11. INFLIXIMAB [Suspect]
     Route: 042
     Dates: start: 20070524
  12. METHOTREXATE [Concomitant]
     Indication: RHEUMATOID ARTHRITIS
     Route: 048
     Dates: start: 20060320
  13. CYCLIZINE [Concomitant]
  14. INFLIXIMAB [Suspect]
     Route: 042
     Dates: start: 20070830
  15. INFLIXIMAB [Suspect]
     Route: 042
     Dates: start: 20070516
  16. METOCLOPRAMIDE [Concomitant]
  17. ACETAMINOPHEN AND CODEINE PHOSPHATE [Concomitant]

REACTIONS (1)
  - LISTERIA SEPSIS [None]
